FAERS Safety Report 14689665 (Version 2)
Quarter: 2018Q1

REPORT INFORMATION
  Report Type: Report from Study
  Country: US (occurrence: US)
  Receive Date: 20180328
  Receipt Date: 20180330
  Transmission Date: 20180509
  Serious: Yes (Death, Hospitalization)
  Sender: FDA-Public Use
  Company Number: US-TAKEDA-2018MPI003212

PATIENT
  Age: 68 Year

DRUGS (3)
  1. DARZALEX [Suspect]
     Active Substance: DARATUMUMAB
     Indication: PLASMA CELL MYELOMA
     Dosage: 16 MG/KG, Q2WEEKS
     Route: 042
     Dates: start: 20170410, end: 20171213
  2. DECADRON [Suspect]
     Active Substance: DEXAMETHASONE
     Indication: PLASMA CELL MYELOMA
     Dosage: 8 MG, UNK
     Route: 042
     Dates: start: 20170410, end: 20171213
  3. VELCADE [Suspect]
     Active Substance: BORTEZOMIB
     Indication: PLASMA CELL MYELOMA
     Dosage: 2 MG, 2/WEEK
     Route: 058
     Dates: start: 20170410, end: 20171213

REACTIONS (4)
  - Pneumonia [Unknown]
  - Neutropenia [Unknown]
  - Pathological fracture [Recovered/Resolved]
  - Respiratory arrest [Fatal]

NARRATIVE: CASE EVENT DATE: 20171114
